FAERS Safety Report 8890219 (Version 2)
Quarter: 2014Q2

REPORT INFORMATION
  Report Type: Spontaneous
  Country: GB (occurrence: GB)
  Receive Date: 20121107
  Receipt Date: 20131018
  Transmission Date: 20141212
  Serious: Yes (Death, Other)
  Sender: FDA-Public Use
  Company Number: GB-PFIZER INC-2012274383

PATIENT
  Age: 67 Year
  Sex: Male
  Weight: 87 kg

DRUGS (5)
  1. METHYLPREDNISOLONE SODIUM SUCCINATE [Suspect]
     Indication: PLASMA CELL MYELOMA
     Dosage: 1 G, UNK
     Route: 042
     Dates: start: 19950925, end: 19950929
  2. ADRIAMYCIN [Concomitant]
     Indication: PLASMA CELL MYELOMA
     Dosage: 0.4 MG, UNK
     Route: 042
     Dates: start: 19950925, end: 19950928
  3. VINCRISTINE [Concomitant]
     Indication: PLASMA CELL MYELOMA
     Dosage: 18 MG, UNK
     Route: 042
     Dates: start: 19950925, end: 19950928
  4. FENTANYL [Concomitant]
     Indication: PAIN
     Route: 062
  5. CLODRONATE DISODIUM [Concomitant]
     Indication: PLASMA CELL MYELOMA
     Dosage: 520 MG, 2X/DAY
     Route: 048
     Dates: start: 1994, end: 19951101

REACTIONS (15)
  - Pancreatitis acute [Fatal]
  - Peritonitis [Fatal]
  - Lower respiratory tract infection [Not Recovered/Not Resolved]
  - Pulmonary oedema [Not Recovered/Not Resolved]
  - Abdominal tenderness [Recovered/Resolved]
  - Pyrexia [Recovered/Resolved]
  - Diarrhoea [Not Recovered/Not Resolved]
  - Mobility decreased [Not Recovered/Not Resolved]
  - Cough [Not Recovered/Not Resolved]
  - Productive cough [Not Recovered/Not Resolved]
  - Back pain [Not Recovered/Not Resolved]
  - Abdominal pain upper [Not Recovered/Not Resolved]
  - Confusional state [Not Recovered/Not Resolved]
  - Incontinence [Not Recovered/Not Resolved]
  - Nausea [Not Recovered/Not Resolved]
